FAERS Safety Report 7429548-2 (Version None)
Quarter: 2011Q2

REPORT INFORMATION
  Report Type: 
  Country: None (occurrence: None)
  Receive Date: 20110421
  Receipt Date: 20110414
  Transmission Date: 20111010
  Serious: Yes (Death, Hospitalization)
  Sender: FDA-Public Use
  Company Number: A0903083A

PATIENT
  Age: 83 Year
  Sex: Male

DRUGS (4)
  1. TENORMIN [Concomitant]
  2. LIPITOR [Concomitant]
  3. COZAAR [Concomitant]
  4. AVANDIA [Suspect]
     Indication: DIABETES MELLITUS
     Dosage: 4MG PER DAY
     Route: 048
     Dates: start: 20040909, end: 20070327

REACTIONS (5)
  - CARDIAC FAILURE CONGESTIVE [None]
  - DEATH [None]
  - CORONARY ARTERY DISEASE [None]
  - MYOCARDIAL INFARCTION [None]
  - CARDIOVASCULAR DISORDER [None]
